FAERS Safety Report 5567001-1 (Version None)
Quarter: 2007Q4

REPORT INFORMATION
  Report Type: 
  Country: None (occurrence: None)
  Receive Date: 20071218
  Receipt Date: 20071218
  Transmission Date: 20080405
  Serious: No
  Sender: FDA-Public Use
  Company Number: None

PATIENT
  Age: 60 Year
  Sex: Female
  Weight: 62.5964 kg

DRUGS (3)
  1. DIVALPROEX SODIUM [Suspect]
     Dosage: 500MG TID PO
     Route: 048
  2. ZYDIS [Concomitant]
  3. ACETAMINOPHEN PRN [Concomitant]

REACTIONS (1)
  - PLATELET COUNT DECREASED [None]
